FAERS Safety Report 12056538 (Version 1)
Quarter: 2016Q1

REPORT INFORMATION
  Report Type: Spontaneous
  Country: RO (occurrence: RO)
  Receive Date: 20160209
  Receipt Date: 20160209
  Transmission Date: 20160526
  Serious: Yes (Hospitalization)
  Sender: FDA-Public Use
  Company Number: RO-B.I. PHARMACEUTICALS,INC./RIDGEFIELD-2016-BI-06634RN

PATIENT
  Age: 46 Year
  Sex: Male

DRUGS (5)
  1. PRADAXA [Suspect]
     Active Substance: DABIGATRAN ETEXILATE MESYLATE
     Indication: ATRIAL FIBRILLATION
     Dosage: 300 MG
     Route: 048
     Dates: start: 20160118, end: 20160120
  2. DIUREX 50 [Concomitant]
     Indication: CARDIAC FAILURE CHRONIC
     Dosage: 1 ANZ
     Route: 048
     Dates: start: 20160111
  3. DIGOXIN. [Concomitant]
     Active Substance: DIGOXIN
     Indication: CARDIAC FAILURE CHRONIC
     Dosage: 0.125 MG
     Route: 048
     Dates: start: 20160111
  4. CORDARONE [Concomitant]
     Active Substance: AMIODARONE HYDROCHLORIDE
     Indication: ATRIAL FIBRILLATION
     Dosage: 200 MG
     Route: 048
     Dates: start: 20160111
  5. SORTIS [Concomitant]
     Active Substance: ATORVASTATIN
     Indication: CONGESTIVE CARDIOMYOPATHY
     Dosage: 20 MG
     Route: 048
     Dates: start: 20160111

REACTIONS (4)
  - Sensation of foreign body [Recovered/Resolved]
  - Oropharyngeal discomfort [Recovered/Resolved]
  - Rash maculo-papular [Recovered/Resolved]
  - Paraesthesia oral [Recovered/Resolved]

NARRATIVE: CASE EVENT DATE: 20160120
